FAERS Safety Report 8880152 (Version 4)
Quarter: 2014Q1

REPORT INFORMATION
  Report Type: Report from Study
  Country: US (occurrence: US)
  Receive Date: 20121031
  Receipt Date: 20140124
  Transmission Date: 20141002
  Serious: Yes (Hospitalization, Other)
  Sender: FDA-Public Use
  Company Number: US-ALEXION-A201202011

PATIENT
  Age: 19 Year
  Sex: Female

DRUGS (1)
  1. SOLIRIS [Suspect]
     Indication: HAEMOLYTIC URAEMIC SYNDROME
     Dosage: UNK
     Route: 042

REACTIONS (5)
  - Pericardial effusion [Unknown]
  - Pleural effusion [Unknown]
  - Plasmapheresis [Unknown]
  - Malaise [Unknown]
  - Pyrexia [Unknown]
